FAERS Safety Report 9994330 (Version 1)
Quarter: 2014Q1

REPORT INFORMATION
  Report Type: Spontaneous
  Country: DE (occurrence: DE)
  Receive Date: 20140311
  Receipt Date: 20140311
  Transmission Date: 20141002
  Serious: Yes (Other)
  Sender: FDA-Public Use
  Company Number: GXKR2014DE001184

PATIENT
  Age: 1 Day
  Sex: Male
  Weight: 2.7 kg

DRUGS (2)
  1. LAMOTRIGINE [Suspect]
     Indication: EPILEPSY
     Dosage: 350 [MG/D ]/ DOSAGE INCREASING AT THE END 150-100-150 MG/D
     Route: 064
     Dates: start: 20120307, end: 20121118
  2. FOLSAEURE [Concomitant]
     Indication: PROPHYLAXIS OF NEURAL TUBE DEFECT
     Dosage: UNK UKN, UNK
     Route: 064

REACTIONS (1)
  - Neonatal respiratory distress syndrome [Recovered/Resolved]
